FAERS Safety Report 5533501-3 (Version None)
Quarter: 2007Q4

REPORT INFORMATION
  Report Type: 
  Country: None (occurrence: None)
  Receive Date: 20071119
  Receipt Date: 20070917
  Transmission Date: 20080405
  Serious: No
  Sender: FDA-Public Use
  Company Number: TPA2007A01932

PATIENT
  Age: 83 Year
  Sex: Female

DRUGS (2)
  1. ROZEREM [Suspect]
  2. UNISOM [Concomitant]

REACTIONS (1)
  - HALLUCINATIONS, MIXED [None]
